FAERS Safety Report 5956558-4 (Version None)
Quarter: 2008Q4

REPORT INFORMATION
  Report Type: 
  Country: None (occurrence: None)
  Receive Date: 20081103
  Receipt Date: 20080905
  Transmission Date: 20090506
  Serious: Yes (Hospitalization)
  Sender: FDA-Public Use
  Company Number: US-WYE-H05879208

PATIENT
  Age: 65 Year
  Sex: Female
  Weight: 58 kg

DRUGS (6)
  1. RAPAMUNE [Suspect]
     Indication: PROPHYLAXIS AGAINST TRANSPLANT REJECTION
     Dosage: 4 MG 1X PER 1 DAY, ORAL : ORAL
     Route: 048
     Dates: start: 20080807, end: 20080101
  2. RAPAMUNE [Suspect]
     Indication: PROPHYLAXIS AGAINST TRANSPLANT REJECTION
     Dosage: 4 MG 1X PER 1 DAY, ORAL : ORAL
     Route: 048
     Dates: start: 20080701, end: 20080806
  3. CARDIZEM [Suspect]
  4. MEPRON [Suspect]
  5. FLAGYL [Suspect]
  6. NYSTATIN [Suspect]

REACTIONS (1)
  - INTERSTITIAL LUNG DISEASE [None]
